FAERS Safety Report 12448272 (Version 2)
Quarter: 2016Q4

REPORT INFORMATION
  Report Type: Spontaneous
  Country: US (occurrence: US)
  Receive Date: 20160608
  Receipt Date: 20161111
  Transmission Date: 20170207
  Serious: No
  Sender: FDA-Public Use
  Company Number: US-GLAXOSMITHKLINE-US2016074407

PATIENT
  Age: 72 Year
  Sex: Female

DRUGS (1)
  1. FLOVENT DISKUS [Suspect]
     Active Substance: FLUTICASONE PROPIONATE
     Indication: ASTHMA
     Dosage: 3 PUFF(S), BID
     Route: 055
     Dates: start: 201405

REACTIONS (3)
  - Overdose [Not Recovered/Not Resolved]
  - Peak expiratory flow rate decreased [Unknown]
  - Device use error [Unknown]

NARRATIVE: CASE EVENT DATE: 2014
